FAERS Safety Report 16815310 (Version 1)
Quarter: 2019Q3

REPORT INFORMATION
  Report Type: Spontaneous
  Country: ES (occurrence: ES)
  Receive Date: 20190917
  Receipt Date: 20190917
  Transmission Date: 20191005
  Serious: Yes (Life-Threatening)
  Sender: FDA-Public Use
  Company Number: ES-ROCHE-2408394

PATIENT
  Age: 40 Year
  Sex: Female

DRUGS (2)
  1. DIAZEPAM. [Suspect]
     Active Substance: DIAZEPAM
     Indication: MUSCLE CONTRACTURE
     Route: 048
     Dates: start: 20180215, end: 20180221
  2. IBUPROFENO [Suspect]
     Active Substance: IBUPROFEN
     Indication: MUSCLE CONTRACTURE
     Route: 048
     Dates: start: 20180209, end: 20180221

REACTIONS (1)
  - Agranulocytosis [Recovered/Resolved]

NARRATIVE: CASE EVENT DATE: 20180221
